FAERS Safety Report 9749949 (Version 1)
Quarter: 2013Q4

REPORT INFORMATION
  Report Type: Spontaneous
  Country: FR (occurrence: FR)
  Receive Date: 20131212
  Receipt Date: 20131212
  Transmission Date: 20140711
  Serious: Yes (Death, Hospitalization)
  Sender: FDA-Public Use
  Company Number: FR-UCBSA-105200

PATIENT
  Age: 74 Year
  Sex: Female

DRUGS (12)
  1. KEPPRA [Suspect]
     Dates: end: 201105
  2. KEPPRA [Suspect]
     Route: 048
     Dates: start: 201211, end: 20121215
  3. LAMICTAL [Concomitant]
     Dates: end: 201105
  4. LAMICTAL [Concomitant]
     Dosage: IN THE MORNING
  5. LAMICTAL [Concomitant]
     Dosage: 75 MG / DAY
     Dates: start: 20120124, end: 2012
  6. LAMICTAL [Concomitant]
     Dosage: 100 MG/DAY
     Dates: start: 201211
  7. KARDEGIC [Concomitant]
  8. PRADAXA [Concomitant]
  9. LANTUS [Concomitant]
     Dosage: 20 IU/DAY
  10. SPECIAFOLDINE [Concomitant]
  11. TARDYFERON [Concomitant]
  12. URBANYL [Concomitant]
     Dosage: 0.5-0-1

REACTIONS (6)
  - Major depression [Fatal]
  - Cognitive disorder [Fatal]
  - Failure to thrive [Fatal]
  - Parkinson^s disease [Unknown]
  - Disinhibition [Unknown]
  - Speech disorder [Unknown]
